FAERS Safety Report 7238476-7 (Version None)
Quarter: 2011Q1

REPORT INFORMATION
  Report Type: 
  Country: None (occurrence: None)
  Receive Date: 20110121
  Receipt Date: 20110113
  Transmission Date: 20110831
  Serious: Yes (Other)
  Sender: FDA-Public Use
  Company Number: ZA-JNJFOC-20110104215

PATIENT
  Sex: Female

DRUGS (8)
  1. PLENISH-K [Concomitant]
     Indication: OEDEMA PERIPHERAL
     Dosage: 1 PER DAY
     Route: 065
  2. NOVOMIX [Concomitant]
     Indication: DIABETES MELLITUS
     Dosage: 30 UNITS IN THE MORNING AND 30 UNITS AT NIGHT.
     Route: 065
  3. LASIX [Concomitant]
     Indication: FLUID RETENTION
     Dosage: 1 PER DAY
     Route: 065
  4. ZOPIVANE [Concomitant]
     Indication: ANXIETY
     Route: 065
  5. TRAMADOL HYDROCHLORIDE/ACETAMINOPHEN [Suspect]
     Indication: NEUROPATHY PERIPHERAL
     Dosage: ONE TABLET IN THE MORNING AND ONE  TABLET IN THE MORNING
     Route: 048
  6. ZETOMAX [Concomitant]
     Indication: DIABETES MELLITUS
     Dosage: 1 PER DAY
     Route: 065
  7. LASIX [Concomitant]
     Indication: OEDEMA PERIPHERAL
     Dosage: 1 PER DAY
     Route: 065
  8. PLENISH-K [Concomitant]
     Indication: FLUID RETENTION
     Dosage: 1 PER DAY
     Route: 065

REACTIONS (5)
  - ANXIETY [None]
  - FEAR [None]
  - VISUAL IMPAIRMENT [None]
  - VISUAL ACUITY REDUCED [None]
  - NERVOUSNESS [None]
